FAERS Safety Report 16527610 (Version 1)
Quarter: 2019Q3

REPORT INFORMATION
  Report Type: Spontaneous
  Country: US (occurrence: US)
  Receive Date: 20190703
  Receipt Date: 20190703
  Transmission Date: 20191004
  Serious: Yes (Other)
  Sender: FDA-Public Use
  Company Number: US-HORIZON-PEN-0634-2019

PATIENT
  Age: 68 Year
  Sex: Female

DRUGS (1)
  1. PENNSAID [Suspect]
     Active Substance: DICLOFENAC SODIUM
     Indication: KNEE OPERATION
     Dosage: AS NEEDED
     Dates: start: 2017

REACTIONS (6)
  - Pulmonary embolism [Unknown]
  - Brain tumour operation [Unknown]
  - Expired product administered [Unknown]
  - Inability to afford medication [Unknown]
  - Off label use [Unknown]
  - Immunodeficiency [Unknown]

NARRATIVE: CASE EVENT DATE: 2017
